FAERS Safety Report 7705846-X (Version None)
Quarter: 2011Q3

REPORT INFORMATION
  Report Type: 
  Country: None (occurrence: None)
  Receive Date: 20110824
  Receipt Date: 20110815
  Transmission Date: 20111222
  Serious: Yes (Death, Hospitalization)
  Sender: FDA-Public Use
  Company Number: TR-NOVOPROD-333768

PATIENT

DRUGS (5)
  1. INSULIN [Concomitant]
     Indication: DIABETES MELLITUS
  2. PREDNISOLONE [Concomitant]
     Dosage: 5 MG, QD
  3. NORDITROPIN [Suspect]
     Dosage: 0.4 MG, QD
  4. NORDITROPIN [Suspect]
     Indication: HYPOPITUITARISM
     Dosage: 0.6 MG, QD
  5. DEXAMETHASONE [Concomitant]
     Indication: DEXAMETHASONE SUPPRESSION TEST

REACTIONS (8)
  - CARDIAC FAILURE [None]
  - HYPOTENSION [None]
  - BRADYCARDIA [None]
  - PRE-EXISTING CONDITION IMPROVED [None]
  - RENAL FAILURE [None]
  - SKIN EXFOLIATION [None]
  - CARDIAC ARREST [None]
  - MYOCARDIAL INFARCTION [None]
